FAERS Safety Report 23978114 (Version 1)
Quarter: 2024Q2

REPORT INFORMATION
  Report Type: Spontaneous
  Country: US (occurrence: US)
  Receive Date: 20240614
  Receipt Date: 20240614
  Transmission Date: 20240716
  Serious: No
  Sender: FDA-Public Use
  Company Number: US-HALEON-2181827

PATIENT
  Sex: Female

DRUGS (1)
  1. ADVIL [Suspect]
     Active Substance: IBUPROFEN\IBUPROFEN SODIUM
     Indication: Product used for unknown indication
     Dosage: EXPDATE:202711
     Dates: start: 20240612

REACTIONS (1)
  - Chromaturia [Unknown]

NARRATIVE: CASE EVENT DATE: 20240613
